FAERS Safety Report 5942531-9 (Version None)
Quarter: 2008Q4

REPORT INFORMATION
  Report Type: 
  Country: None (occurrence: None)
  Receive Date: 20081105
  Receipt Date: 20081028
  Transmission Date: 20090506
  Serious: Yes (Other)
  Sender: FDA-Public Use
  Company Number: GB-PFIZER INC-2008090955

PATIENT
  Sex: Female

DRUGS (2)
  1. PEGVISOMANT [Suspect]
  2. MANNITOL [Concomitant]

REACTIONS (1)
  - ANAPHYLACTIC REACTION [None]
